FAERS Safety Report 5963276-5 (Version None)
Quarter: 2008Q4

REPORT INFORMATION
  Report Type: 
  Country: None (occurrence: None)
  Receive Date: 20081120
  Receipt Date: 20081120
  Transmission Date: 20090506
  Serious: No
  Sender: FDA-Public Use
  Company Number: None

PATIENT
  Age: 83 Year
  Sex: Male
  Weight: 94.3 kg

DRUGS (1)
  1. ALENDRONATE SODIUM [Suspect]
     Dosage: 70 MG QWEEK PO
     Route: 048
     Dates: start: 20030710, end: 20070706

REACTIONS (3)
  - DYSPEPSIA [None]
  - GASTRITIS [None]
  - GASTROINTESTINAL HAEMORRHAGE [None]
